FAERS Safety Report 7604410-0 (Version None)
Quarter: 2011Q3

REPORT INFORMATION
  Report Type: 
  Country: None (occurrence: None)
  Receive Date: 20110712
  Receipt Date: 20110704
  Transmission Date: 20111222
  Serious: Yes (Other)
  Sender: FDA-Public Use
  Company Number: DE-PFIZER INC-2011148945

PATIENT
  Age: 70 Year
  Sex: Female

DRUGS (1)
  1. XALATAN [Suspect]

REACTIONS (1)
  - CATARACT OPERATION [None]
